FAERS Safety Report 17085598 (Version 1)
Quarter: 2019Q4

REPORT INFORMATION
  Report Type: Spontaneous
  Country: US (occurrence: US)
  Receive Date: 20191127
  Receipt Date: 20191127
  Transmission Date: 20200122
  Serious: Yes (Hospitalization)
  Sender: FDA-Public Use
  Company Number: None

PATIENT
  Age: 21 Year
  Sex: Male
  Weight: 112 kg

DRUGS (7)
  1. PHENYTOIN ER [Concomitant]
     Active Substance: PHENYTOIN SODIUM
  2. TRAZODONE [Concomitant]
     Active Substance: TRAZODONE HYDROCHLORIDE
  3. CLOBAZAM. [Concomitant]
     Active Substance: CLOBAZAM
  4. ZONEGRAN [Suspect]
     Active Substance: ZONISAMIDE
     Indication: SEIZURE
     Route: 048
     Dates: start: 20191113, end: 20191125
  5. DIAZEPAM. [Concomitant]
     Active Substance: DIAZEPAM
  6. PHENOBARBITAL. [Concomitant]
     Active Substance: PHENOBARBITAL
  7. CARIPRAZINE [Concomitant]
     Active Substance: CARIPRAZINE

REACTIONS (1)
  - Agranulocytosis [None]

NARRATIVE: CASE EVENT DATE: 20191125
